FAERS Safety Report 7494809 (Version 3)
Quarter: 2014Q2

REPORT INFORMATION
  Report Type: Spontaneous
  Country: US (occurrence: US)
  Receive Date: 20100722
  Receipt Date: 20140512
  Transmission Date: 20141212
  Serious: Yes (Hospitalization, Other)
  Sender: FDA-Public Use
  Company Number: US-ASTRAZENECA-2010SE32795

PATIENT
  Sex: Female
  Weight: 72.6 kg

DRUGS (6)
  1. CRESTOR [Suspect]
     Indication: BLOOD CHOLESTEROL INCREASED
     Route: 048
     Dates: start: 200907
  2. METOPROLOL [Concomitant]
     Indication: HYPERTENSION
  3. PLAVIX [Concomitant]
  4. ASPIRIN [Concomitant]
  5. MELATONIN [Concomitant]
  6. UNSPECIFIED ACID REDUCER [Concomitant]
     Indication: GASTROOESOPHAGEAL REFLUX DISEASE

REACTIONS (4)
  - Foot fracture [Recovering/Resolving]
  - Myocardial infarction [Unknown]
  - Depression [Unknown]
  - Blood cholesterol increased [Unknown]
